FAERS Safety Report 5350695-3 (Version None)
Quarter: 2007Q2

REPORT INFORMATION
  Report Type: 
  Country: None (occurrence: None)
  Receive Date: 20070608
  Receipt Date: 20070530
  Transmission Date: 20071010
  Serious: Yes (Disabling)
  Sender: FDA-Public Use
  Company Number: US-ELI_LILLY_AND_COMPANY-US200705007583

PATIENT
  Age: 86 Year
  Sex: Female

DRUGS (7)
  1. EVISTA [Suspect]
     Indication: OSTEOPOROSIS
     Dosage: 60 MG, UNK
     Route: 048
  2. MULTI-VITAMIN [Concomitant]
     Indication: SUPPLEMENTATION THERAPY
  3. CALCIUM WITH VITAMIN D [Concomitant]
     Indication: SUPPLEMENTATION THERAPY
     Dosage: 600 MG, 2/D
  4. ASPIRIN [Concomitant]
     Dosage: 81 MG, DAILY (1/D)
  5. LEVOTHYROXINE SODIUM [Concomitant]
     Indication: HYPOTHYROIDISM
     Dosage: 50 MG, DAILY (1/D)
  6. LEVOTHYROXINE SODIUM [Concomitant]
     Dosage: 25 MG, 3/W
  7. TRIAMTERENE [Concomitant]
     Indication: SWELLING
     Dosage: 37.5 MG, DAILY (1/D)

REACTIONS (7)
  - ASTHENIA [None]
  - DIZZINESS [None]
  - FATIGUE [None]
  - FEELING ABNORMAL [None]
  - GAIT DISTURBANCE [None]
  - HYPOTHYROIDISM [None]
  - VITAMIN D DEFICIENCY [None]
